FAERS Safety Report 7929780-5 (Version None)
Quarter: 2011Q4

REPORT INFORMATION
  Report Type: 
  Country: None (occurrence: None)
  Receive Date: 20111121
  Receipt Date: 20111117
  Transmission Date: 20120403
  Serious: Yes (Death)
  Sender: FDA-Public Use
  Company Number: PHHY2010AU092620

PATIENT
  Sex: Female

DRUGS (4)
  1. AZATHIOPRINE [Concomitant]
     Indication: MYOSITIS
     Dosage: 50 MG, BID
     Route: 048
     Dates: start: 20080310
  2. PREDNISONE TAB [Concomitant]
     Indication: MYOSITIS
     Dosage: 10 MG, DAILY
     Route: 048
     Dates: start: 20050228
  3. METHOTREXATE [Concomitant]
     Indication: MYOSITIS
     Dosage: 20 MG, ONCE WEEKLY
     Route: 048
     Dates: start: 20050228
  4. ZOLEDRONOC ACID [Suspect]
     Dosage: 5 MG, YEARLY
     Route: 042
     Dates: start: 20090604

REACTIONS (1)
  - CARDIAC ARREST [None]
